FAERS Safety Report 6389494-2 (Version None)
Quarter: 2009Q4

REPORT INFORMATION
  Report Type: 
  Country: None (occurrence: None)
  Receive Date: 20091006
  Receipt Date: 20090929
  Transmission Date: 20100525
  Serious: Yes (Other)
  Sender: FDA-Public Use
  Company Number: IE-ROCHE-659404

PATIENT
  Age: 4 Year
  Sex: Female

DRUGS (1)
  1. TAMIFLU [Suspect]
     Indication: PROPHYLACTIC CHEMOTHERAPY
     Route: 048
     Dates: start: 20090921, end: 20090923

REACTIONS (2)
  - EPISTAXIS [None]
  - OEDEMA PERIPHERAL [None]
